FAERS Safety Report 5919793-7 (Version None)
Quarter: 2008Q4

REPORT INFORMATION
  Report Type: 
  Country: None (occurrence: None)
  Receive Date: 20081015
  Receipt Date: 20081003
  Transmission Date: 20090506
  Serious: Yes (Life-Threatening)
  Sender: FDA-Public Use
  Company Number: GB-PFIZER INC-2008084471

PATIENT
  Age: 36 Year
  Sex: Male

DRUGS (2)
  1. CHANTIX [Suspect]
     Indication: SMOKING CESSATION THERAPY
     Route: 048
     Dates: start: 20080804, end: 20080924
  2. AMITRIPTYLINE HCL [Suspect]
     Indication: INSOMNIA

REACTIONS (3)
  - OVERDOSE [None]
  - PARANOIA [None]
  - SUICIDE ATTEMPT [None]
